FAERS Safety Report 5901864-2 (Version None)
Quarter: 2008Q3

REPORT INFORMATION
  Report Type: 
  Country: None (occurrence: None)
  Receive Date: 20080929
  Receipt Date: 20080208
  Transmission Date: 20090109
  Serious: Yes (Death, Other)
  Sender: FDA-Public Use
  Company Number: DE-BAYER-200718031GPV

PATIENT
  Age: 67 Year
  Sex: Female

DRUGS (3)
  1. FLUDARABINE PHOSPHATE [Suspect]
     Indication: MULTIPLE MYELOMA
     Route: 065
  2. ATGAM [Suspect]
     Indication: MULTIPLE MYELOMA
     Dosage: TOTAL DAILY DOSE: 200 MG
     Route: 065
  3. CYCLOPHOSPHAMIDE [Suspect]
     Indication: BONE MARROW CONDITIONING REGIMEN
     Route: 065

REACTIONS (12)
  - BLINDNESS [None]
  - BRAIN STEM INFARCTION [None]
  - COMA [None]
  - DISSEMINATED CYTOMEGALOVIRAL INFECTION [None]
  - ENCEPHALITIS [None]
  - EPSTEIN-BARR VIRUS INFECTION [None]
  - MYELITIS [None]
  - NERVOUS SYSTEM DISORDER [None]
  - PARAPARESIS [None]
  - RENAL FAILURE ACUTE [None]
  - RESPIRATORY FAILURE [None]
  - SEPTIC SHOCK [None]
